FAERS Safety Report 5534109-6 (Version None)
Quarter: 2007Q4

REPORT INFORMATION
  Report Type: 
  Country: None (occurrence: None)
  Receive Date: 20071130
  Receipt Date: 20071120
  Transmission Date: 20080405
  Serious: Yes (Other)
  Sender: FDA-Public Use
  Company Number: THQ2007A01066

PATIENT
  Age: 77 Year
  Sex: Male

DRUGS (1)
  1. LEUPROLIDE ACETATE [Suspect]
     Indication: PROSTATE CANCER
     Dosage: 22.5 MG (22.5 MG, 1 IN 3 M) INTRAMUSCULAR
     Route: 030
     Dates: start: 20071016

REACTIONS (11)
  - BEDRIDDEN [None]
  - DECREASED APPETITE [None]
  - GOUT [None]
  - INJECTION SITE DISCHARGE [None]
  - INJECTION SITE DISCOMFORT [None]
  - INJECTION SITE ERYTHEMA [None]
  - INJECTION SITE INDURATION [None]
  - INJECTION SITE NODULE [None]
  - LOCAL SWELLING [None]
  - MOBILITY DECREASED [None]
  - PURULENCE [None]
